FAERS Safety Report 12911820 (Version 1)
Quarter: 2016Q4

REPORT INFORMATION
  Report Type: Spontaneous
  Country: US (occurrence: US)
  Receive Date: 20161104
  Receipt Date: 20161104
  Transmission Date: 20170207
  Serious: No
  Sender: FDA-Public Use
  Company Number: US-BAYER-2016-209214

PATIENT
  Sex: Female

DRUGS (1)
  1. ALEVE [Suspect]
     Active Substance: NAPROXEN SODIUM
     Indication: PAIN
     Dosage: UNK, QD
     Route: 048
     Dates: start: 201609, end: 201610

REACTIONS (2)
  - Product use issue [None]
  - Dyspepsia [None]

NARRATIVE: CASE EVENT DATE: 201609
